FAERS Safety Report 4315537-3 (Version None)
Quarter: 2004Q1

REPORT INFORMATION
  Report Type: 
  Country: None (occurrence: None)
  Receive Date: 20040311
  Receipt Date: 20040209
  Transmission Date: 20041129
  Serious: Yes (Hospitalization)
  Sender: FDA-Public Use
  Company Number: JP-ROCHE-358609

PATIENT
  Age: 14 Year
  Sex: Male
  Weight: 71.1 kg

DRUGS (5)
  1. TAMIFLU [Suspect]
     Route: 048
     Dates: start: 20040127, end: 20040130
  2. MUCODYNE [Concomitant]
     Indication: COUGH
     Route: 048
     Dates: start: 20040128, end: 20040204
  3. BISOLVON [Concomitant]
     Indication: COUGH
     Route: 048
     Dates: start: 20040128, end: 20040204
  4. MEPTIN MINI TABLETS [Concomitant]
     Indication: COUGH
     Route: 048
     Dates: start: 20040128, end: 20040204
  5. MEIACT [Concomitant]
     Indication: COUGH
     Route: 048
     Dates: start: 20040128, end: 20040131

REACTIONS (11)
  - BLOOD CREATINE PHOSPHOKINASE INCREASED [None]
  - FEELING ABNORMAL [None]
  - HAEMATURIA [None]
  - INSOMNIA [None]
  - PALPITATIONS [None]
  - PANIC REACTION [None]
  - RESTLESSNESS [None]
  - SCHIZOPHRENIA [None]
  - SUFFOCATION FEELING [None]
  - THIRST [None]
  - TREMOR [None]
